FAERS Safety Report 26190442 (Version 1)
Quarter: 2025Q4

REPORT INFORMATION
  Report Type: Spontaneous
  Country: US (occurrence: US)
  Receive Date: 20251223
  Receipt Date: 20251223
  Transmission Date: 20260118
  Serious: No
  Sender: AVERITAS
  Company Number: US-GRUNENTHAL-2025-126482

PATIENT
  Sex: Male

DRUGS (1)
  1. QUTENZA [Suspect]
     Active Substance: CAPSAICIN
     Indication: Product used for unknown indication
     Dosage: UNK UNK, ONCE
     Route: 061
     Dates: start: 20251211, end: 20251211

REACTIONS (2)
  - Neuralgia [Unknown]
  - Discomfort [Unknown]

NARRATIVE: CASE EVENT DATE: 20251217
